FAERS Safety Report 9457721 (Version 1)
Quarter: 2013Q3

REPORT INFORMATION
  Report Type: Spontaneous
  Country: GB (occurrence: None)
  Receive Date: 20130812
  Receipt Date: 20130812
  Transmission Date: 20140515
  Serious: Yes (Hospitalization, Other)
  Sender: FDA-Public Use
  Company Number: AG-2012-1290

PATIENT
  Age: 70 Year
  Sex: Female
  Weight: 90.7 kg

DRUGS (2)
  1. CHLORAMBUCIL [Suspect]
     Indication: CHRONIC LYMPHOCYTIC LEUKAEMIA
     Dosage: FOR 7 DAYS EACH CYCLE (20 MILLIGRAM, 1 IN 1 CYCLICAL
     Route: 048
     Dates: start: 20111121
  2. RITUXIMAB [Suspect]
     Dosage: 1 IN 1 CYCLICAL (NOT OTHERWISE SPECIFIED)
     Route: 042

REACTIONS (5)
  - Renal failure acute [None]
  - Urinary tract infection [None]
  - Dehydration [None]
  - Anaemia [None]
  - Blood lactate dehydrogenase increased [None]
